FAERS Safety Report 4725285-3 (Version None)
Quarter: 2005Q3

REPORT INFORMATION
  Report Type: 
  Country: None (occurrence: None)
  Receive Date: 20050721
  Receipt Date: 20050609
  Transmission Date: 20060218
  Serious: No
  Sender: FDA-Public Use
  Company Number: 2005SP001326

PATIENT
  Age: 63 Year
  Sex: Female
  Weight: 68.0396 kg

DRUGS (3)
  1. LUNESTA [Suspect]
     Dosage: SEE IMAGE
     Route: 048
     Dates: start: 20050606, end: 20050606
  2. LUNESTA [Suspect]
     Dosage: SEE IMAGE
     Route: 048
     Dates: start: 20050607
  3. LUNESTA [Suspect]

REACTIONS (1)
  - DYSGEUSIA [None]
